FAERS Safety Report 7604353-2 (Version None)
Quarter: 2011Q3

REPORT INFORMATION
  Report Type: 
  Country: None (occurrence: None)
  Receive Date: 20110712
  Receipt Date: 20110628
  Transmission Date: 20111222
  Serious: Yes (Hospitalization)
  Sender: FDA-Public Use
  Company Number: US-ROCHE-787743

PATIENT
  Sex: Female

DRUGS (7)
  1. PEGINTERFERON ALFA-2A [Suspect]
     Indication: HEPATITIS C
     Dosage: LAST DOSE RECEIVED ON: 01 APRIL 2011
     Route: 058
     Dates: start: 20101014, end: 20110401
  2. RIBAVIRIN [Suspect]
     Indication: HEPATITIS C
     Dosage: LAST DOSE PRIOR TO SAE RECEIVED ON
     Route: 048
     Dates: start: 20101014, end: 20110406
  3. RIBAVIRIN [Suspect]
     Route: 048
  4. LEVAQUIN [Concomitant]
  5. ZANTAC [Concomitant]
  6. FENTANYL [Concomitant]
  7. BLINDED BMS-790052 (HCV NS5A INHIBITOR) [Suspect]
     Indication: HEPATITIS C
     Dosage: LAST DOSE RECEIVED ON : 30 MARCH 2011
     Route: 048
     Dates: start: 20101014, end: 20110330

REACTIONS (3)
  - CEREBROVASCULAR ACCIDENT [None]
  - PNEUMONIA [None]
  - DEEP VEIN THROMBOSIS [None]
